FAERS Safety Report 10095476 (Version 2)
Quarter: 2014Q2

REPORT INFORMATION
  Report Type: Spontaneous
  Country: JP (occurrence: JP)
  Receive Date: 20140422
  Receipt Date: 20140519
  Transmission Date: 20141212
  Serious: Yes (Other)
  Sender: FDA-Public Use
  Company Number: JP-PFIZER INC-2014106993

PATIENT
  Age: 3 Decade
  Sex: Male
  Weight: 72 kg

DRUGS (2)
  1. UNASYN [Suspect]
     Indication: ADENOIDITIS
     Dosage: 375 MG, 3X/DAY
     Route: 048
     Dates: start: 201307
  2. DALACIN [Suspect]
     Dosage: 150 MG, 4X/DAY
     Route: 048
     Dates: start: 201307

REACTIONS (1)
  - Toxic skin eruption [Recovering/Resolving]
